FAERS Safety Report 15110505 (Version 1)
Quarter: 2018Q3

REPORT INFORMATION
  Report Type: Spontaneous
  Country: FR (occurrence: FR)
  Receive Date: 20180705
  Receipt Date: 20180705
  Transmission Date: 20181010
  Serious: Yes (Hospitalization)
  Sender: FDA-Public Use
  Company Number: PHHY2018FR037063

PATIENT
  Age: 66 Year
  Sex: Female
  Weight: 99 kg

DRUGS (1)
  1. PACLITAXEL. [Suspect]
     Active Substance: PACLITAXEL
     Indication: NEOPLASM MALIGNANT
     Dosage: 85 MG/M2, UNK
     Route: 042

REACTIONS (1)
  - Aplasia [Recovering/Resolving]

NARRATIVE: CASE EVENT DATE: 20180120
